FAERS Safety Report 10380414 (Version 2)
Quarter: 2014Q3

REPORT INFORMATION
  Report Type: Spontaneous
  Country: IR (occurrence: IR)
  Receive Date: 20140813
  Receipt Date: 20140813
  Transmission Date: 20150326
  Serious: Yes (Other)
  Sender: FDA-Public Use
  Company Number: IR-RANBAXY-2014RR-84119

PATIENT
  Age: 38 Year
  Sex: Female

DRUGS (2)
  1. RISPERIDONE. [Suspect]
     Active Substance: RISPERIDONE
     Indication: BIPOLAR DISORDER
     Dosage: 4 MG, DAILY
     Route: 065
  2. BIPERIDEN [Concomitant]
     Active Substance: BIPERIDEN
     Indication: BIPOLAR DISORDER
     Dosage: 2 MG, DAILY
     Route: 065

REACTIONS (1)
  - Deep vein thrombosis [Unknown]
